FAERS Safety Report 22225911 (Version 1)
Quarter: 2023Q2

REPORT INFORMATION
  Report Type: Other
  Country: GB (occurrence: GB)
  Receive Date: 20230419
  Receipt Date: 20230419
  Transmission Date: 20230722
  Serious: Yes (Other)
  Sender: FDA-Public Use
  Company Number: None

PATIENT
  Age: 73 Year
  Sex: Female
  Weight: 90 kg

DRUGS (17)
  1. GABAPENTIN [Suspect]
     Active Substance: GABAPENTIN
     Indication: Ill-defined disorder
     Dosage: 900 MILLIGRAM, QD; CAPSULE
     Route: 065
     Dates: start: 20220216
  2. GABAPENTIN [Suspect]
     Active Substance: GABAPENTIN
     Indication: Neuralgia
     Dosage: 1 DOSAGE FORM, TID  (ONE TO BE TAKEN THREE TIMES DAILY NERVE PAIN) CAPSULE
     Route: 065
     Dates: start: 20220216, end: 20220517
  3. GABAPENTIN [Suspect]
     Active Substance: GABAPENTIN
     Dosage: UNK
     Route: 065
     Dates: start: 20220517
  4. ASPIRIN [Concomitant]
     Active Substance: ASPIRIN
     Indication: Ill-defined disorder
     Dosage: 1 DF, QD (TAKE ONE DAILY)
     Route: 065
     Dates: start: 20220216
  5. BECLOMETHASONE DIPROPIONATE [Concomitant]
     Active Substance: BECLOMETHASONE DIPROPIONATE
     Indication: Ill-defined disorder
     Dosage: 4 DF, QD, (TWO PUFFS TWICE DAILY. STEROID. USE REGULARLY F..)
     Dates: start: 20220216
  6. BECLOMETHASONE DIPROPIONATE [Concomitant]
     Active Substance: BECLOMETHASONE DIPROPIONATE
     Indication: Steroid therapy
  7. BETAMETHASONE VALERATE [Concomitant]
     Active Substance: BETAMETHASONE VALERATE
     Indication: Ill-defined disorder
     Dosage: 2 DF, QD, (APPLY TWICE DAILY)
     Route: 065
     Dates: start: 20220216
  8. DOXAZOSIN [Concomitant]
     Active Substance: DOXAZOSIN MESYLATE
     Indication: Hypertension
     Dosage: 1 DF, QD, (TAKE ONE DAILY FOR HYPERTENSION. BOOK BLOOD TES...)
     Route: 065
     Dates: start: 20220216
  9. EZETIMIBE [Concomitant]
     Active Substance: EZETIMIBE
     Indication: Ill-defined disorder
     Dosage: 1 DF, QD, TAKE ONE TABLET ONCE A DAY
     Route: 065
     Dates: start: 20220216
  10. BUTYLSCOPOLAMINE BROMIDE [Concomitant]
     Active Substance: BUTYLSCOPOLAMINE BROMIDE
     Indication: Ill-defined disorder
     Dosage: QID (1-2 FOUR TIMES A DAY BEFORE FOOD WHEN REQUIRED)
     Route: 065
     Dates: start: 20220216
  11. HYPROMELLOSES [Concomitant]
     Active Substance: HYPROMELLOSES
     Indication: Ill-defined disorder
     Dosage: 4 DF, QD, (ONE DROP APPLIED FOUR TIMES DAILY  DRY EYES )
     Route: 065
     Dates: start: 20220216
  12. HYPROMELLOSES [Concomitant]
     Active Substance: HYPROMELLOSES
     Indication: Dry eye
  13. LACTULOSE [Concomitant]
     Active Substance: LACTULOSE
     Indication: Ill-defined disorder
     Dosage: 30 MILLILITER, QD (15 MILLILITER, BID)
     Route: 065
     Dates: start: 20210205
  14. LEVOTHYROXINE [Concomitant]
     Active Substance: LEVOTHYROXINE
     Indication: Ill-defined disorder
     Dosage: 1 DF, EVERY MORNING (TAKE ONE IN THE MORNING 30 MINUTES BEFORE FOOD.... )
     Route: 065
     Dates: start: 20220216
  15. LOPERAMIDE [Concomitant]
     Active Substance: LOPERAMIDE
     Indication: Diarrhoea
     Dosage: 2 DF, QD, (ONE TABLET TWICE A DAY FOR DIARRHOEA)
     Route: 065
     Dates: start: 20220216
  16. ESTRIOL [Concomitant]
     Active Substance: ESTRIOL
     Indication: Ill-defined disorder
     Dosage: 2 TIMES A WEEK, (APPLY AT NIGHT TWICE A WEEK/2 DF 1 WEEK)
     Route: 065
     Dates: start: 20220216
  17. TEMAZEPAM [Concomitant]
     Active Substance: TEMAZEPAM
     Indication: Ill-defined disorder
     Dosage: AT BED TIME (1 OR 2  AT NIGHT. HYPNOTIC. POTENTIALLY ADDICTIVE. DO NOT USE REGULARLY)
     Route: 065
     Dates: start: 20220503

REACTIONS (2)
  - Confusional state [Recovered/Resolved]
  - Adverse drug reaction [Recovered/Resolved]

NARRATIVE: CASE EVENT DATE: 20220517
